FAERS Safety Report 18363288 (Version 1)
Quarter: 2020Q4

REPORT INFORMATION
  Report Type: Other
  Country: CA (occurrence: CA)
  Receive Date: 20201008
  Receipt Date: 20201008
  Transmission Date: 20210114
  Serious: Yes (Death)
  Sender: FDA-Public Use
  Company Number: CA-CELLTRION INC.-2020CA028597

PATIENT

DRUGS (3)
  1. NAPROXEN. [Concomitant]
     Active Substance: NAPROXEN
  2. RITUXIMAB (UNKNOWN) [Suspect]
     Active Substance: RITUXIMAB
     Indication: MULTIFOCAL MOTOR NEUROPATHY
     Dosage: 700 MG, 1 EVERY 1 WEEKS
     Route: 042
  3. ALUMINUM HYDROXIDE/MAGNESIUM HYDROXIDE [Concomitant]

REACTIONS (3)
  - Death [Fatal]
  - Intentional product use issue [Fatal]
  - Off label use [Fatal]
